FAERS Safety Report 9864120 (Version 1)
Quarter: 2014Q1

REPORT INFORMATION
  Report Type: Spontaneous
  Country: FR (occurrence: FR)
  Receive Date: 20140203
  Receipt Date: 20140203
  Transmission Date: 20141002
  Serious: Yes (Death, Hospitalization, Other)
  Sender: FDA-Public Use
  Company Number: FR-PFIZER INC-2014029028

PATIENT
  Age: 66 Year
  Sex: Female

DRUGS (13)
  1. LYRICA [Suspect]
     Indication: GAIT DISTURBANCE
     Dosage: UNK
     Route: 048
     Dates: start: 201312
  2. LYRICA [Suspect]
     Indication: PAIN
  3. NITRIDERM [Concomitant]
  4. CRESTOR [Concomitant]
  5. LASILIX [Concomitant]
  6. CORDARONE [Concomitant]
  7. KARDEGIC [Concomitant]
  8. TAREG [Concomitant]
  9. LEVOTHYROX [Concomitant]
  10. PREVISCAN [Concomitant]
  11. LEVEMIR [Concomitant]
  12. PARACETAMOL [Concomitant]
  13. DIFFU K [Concomitant]

REACTIONS (8)
  - Off label use [Fatal]
  - Death [Fatal]
  - Cardiac arrest [Fatal]
  - Cardiac failure [Unknown]
  - Chest pain [Unknown]
  - Diarrhoea [Unknown]
  - Abdominal pain [Unknown]
  - Presyncope [Unknown]
